FAERS Safety Report 6119992-8 (Version None)
Quarter: 2009Q1

REPORT INFORMATION
  Report Type: 
  Country: None (occurrence: None)
  Receive Date: 20090316
  Receipt Date: 20090306
  Transmission Date: 20090719
  Serious: No
  Sender: FDA-Public Use
  Company Number: US-B.I. PHARMACEUTICALS,INC./RIDGEFIELD-2009-BP-02931BP

PATIENT
  Sex: Female

DRUGS (3)
  1. SPIRIVA [Suspect]
     Indication: EMPHYSEMA
  2. COMBIVENT [Concomitant]
     Indication: DYSPNOEA
  3. OTHER PRESCRIPTION MEDICATIONS [Concomitant]
     Indication: DYSPNOEA

REACTIONS (1)
  - DYSURIA [None]
